FAERS Safety Report 11075550 (Version 1)
Quarter: 2015Q2

REPORT INFORMATION
  Report Type: Spontaneous
  Country: US (occurrence: US)
  Receive Date: 20150429
  Receipt Date: 20150429
  Transmission Date: 20150821
  Serious: Yes (Other)
  Sender: FDA-Public Use
  Company Number: PHHY2015US023471

PATIENT
  Age: 41 Year
  Sex: Male

DRUGS (24)
  1. BACLOFEN INTRATHECAL [Suspect]
     Active Substance: BACLOFEN
     Dosage: 198.52 MCG/ DAY, PUMP DOSE INCREASED 159 PERCENT
     Route: 037
     Dates: start: 20140917
  2. BACLOFEN INTRATHECAL [Suspect]
     Active Substance: BACLOFEN
     Dosage: 125 UG (500-1000 MCG/ML), PER DAY
     Route: 037
  3. BACLOFEN INTRATHECAL [Suspect]
     Active Substance: BACLOFEN
     Dosage: 125.03 MCG DAILY, DOSE WAS DECREASED 37 PERCENT
     Route: 037
     Dates: start: 20140929
  4. BACLOFEN INTRATHECAL [Suspect]
     Active Substance: BACLOFEN
     Dosage: 150 UG (500-1000 MCG/ML), PER DAY
     Route: 037
     Dates: start: 201410
  5. BACLOFEN INTRATHECAL [Suspect]
     Active Substance: BACLOFEN
     Dosage: 149.9 MCG/ DAY, DOSE WAS INCREASED 11 PERCENT AND SINGLE BOLUS OF 993.1 MCG OVER THE COURS
     Route: 065
     Dates: start: 20141124
  6. BACLOFEN INTRATHECAL [Suspect]
     Active Substance: BACLOFEN
     Dosage: 488.4 MCG, BRIDGE BOLUS OVER THE COURSE OF 35 HOURS AND 32 MINUTES
     Route: 065
  7. BACLOFEN INTRATHECAL [Suspect]
     Active Substance: BACLOFEN
     Dosage: DELIVERED A 19 PERCENT OF 470.24 MCG/DAY (CONCENTRATION 500 MCG/ML)
     Route: 037
     Dates: start: 20150319
  8. TRAMADOL [Suspect]
     Active Substance: TRAMADOL
     Indication: PRODUCT USED FOR UNKNOWN INDICATION
     Dosage: UNK
     Route: 065
  9. BACLOFEN INTRATHECAL [Suspect]
     Active Substance: BACLOFEN
     Dosage: 1050.97 UG, SINGLE INFUSION BOLUS DELIVERED OVER THE COURSE OF 168 MINUTES
     Route: 041
  10. BACLOFEN INTRATHECAL [Suspect]
     Active Substance: BACLOFEN
     Dosage: 0.398 ML,  BOLUS DURATION WAS 12 HOURS, 44 MINUTES
     Route: 041
  11. BACLOFEN INTRATHECAL [Suspect]
     Active Substance: BACLOFEN
     Dosage: 149.9 MCG/ DAY, (CONCENTRATION 1000 MCG/ML) DOSE WAS DECREASED 33 PERCENT
     Route: 037
     Dates: start: 20150106
  12. BACLOFEN INTRATHECAL [Suspect]
     Active Substance: BACLOFEN
     Dosage: 449.7 MCG, SINGLE INFUSION BOLUS OVER THE COURSE OF 48 HOURS
     Route: 041
  13. BACLOFEN INTRATHECAL [Suspect]
     Active Substance: BACLOFEN
     Indication: PAIN
     Dosage: 76.58 MCG/DAY (200 MCG/ ML)
     Route: 037
     Dates: start: 20140909
  14. BACLOFEN INTRATHECAL [Suspect]
     Active Substance: BACLOFEN
     Dosage: 135 MCG/DAY, DOSE WAS DECREASED 10 PERCENT
     Route: 037
     Dates: start: 20141017
  15. BACLOFEN INTRATHECAL [Suspect]
     Active Substance: BACLOFEN
     Dosage: 175.3 MCG/ DAY AND SINGLE BOLUS OF 50 MCG
     Route: 065
     Dates: start: 20141208
  16. MORPHINE [Suspect]
     Active Substance: MORPHINE
     Indication: PRODUCT USED FOR UNKNOWN INDICATION
     Dosage: UNK
     Route: 048
  17. BACLOFEN INTRATHECAL [Suspect]
     Active Substance: BACLOFEN
     Dosage: 149.9 MCG/DAY, (1000 MCG/ML) DOSE WAS INCREASED 20 PERCENT
     Route: 037
     Dates: start: 20141016
  18. BACLOFEN INTRATHECAL [Suspect]
     Active Substance: BACLOFEN
     Dosage: 329 UG (500 MCG/ML), PER DAY
     Route: 037
  19. BACLOFEN INTRATHECAL [Suspect]
     Active Substance: BACLOFEN
     Dosage: 329.4 MCG/DAY (CONCENTRATION 1000 MCG/ML), DOSE INCREASED 120 PERCENT
     Route: 037
     Dates: start: 20150113
  20. BACLOFEN INTRATHECAL [Suspect]
     Active Substance: BACLOFEN
     Dosage: 393.94 MCG/DAY, (CONCENTRATION 500 MCG/ML), DOSE INCREASED 20 PERCENT
     Route: 037
     Dates: start: 20150219
  21. DOXYCYCLINE. [Suspect]
     Active Substance: DOXYCYCLINE
     Indication: PRODUCT USED FOR UNKNOWN INDICATION
     Route: 065
  22. BACLOFEN INTRATHECAL [Suspect]
     Active Substance: BACLOFEN
     Dosage: 224.9 MCG/ DAY, DOSE WAS INCREASED 28 PERCENT AND SINGLE PUMP DOSE OF 237.2 MCG OVER 15 MINUTES
     Route: 065
     Dates: start: 20141223
  23. BACLOFEN INTRATHECAL [Suspect]
     Active Substance: BACLOFEN
     Dosage: 329.02 MCG/DAY (CONCENTRATION 500 MCG/ML)
     Route: 037
     Dates: start: 20150204
  24. LYRICA [Suspect]
     Active Substance: PREGABALIN
     Indication: PRODUCT USED FOR UNKNOWN INDICATION
     Route: 065

REACTIONS (5)
  - Overdose [Not Recovered/Not Resolved]
  - No therapeutic response [Not Recovered/Not Resolved]
  - Fatigue [Not Recovered/Not Resolved]
  - Muscle tightness [Not Recovered/Not Resolved]
  - Musculoskeletal stiffness [Not Recovered/Not Resolved]

NARRATIVE: CASE EVENT DATE: 201410
